FAERS Safety Report 20380255 (Version 1)
Quarter: 2022Q1

REPORT INFORMATION
  Report Type: Spontaneous
  Country: FR (occurrence: FR)
  Receive Date: 20220126
  Receipt Date: 20220126
  Transmission Date: 20220423
  Serious: Yes (Hospitalization, Other)
  Sender: FDA-Public Use
  Company Number: FR-IPCA LABORATORIES LIMITED-IPC-2022-FR-000085

PATIENT

DRUGS (8)
  1. TRAMADOL HYDROCHLORIDE [Suspect]
     Active Substance: TRAMADOL HYDROCHLORIDE
     Indication: Pain
     Dosage: 225 MILLIGRAM, QD
     Route: 065
  2. SERTRALINE [Suspect]
     Active Substance: SERTRALINE HYDROCHLORIDE
     Indication: Anxiolytic therapy
     Dosage: 50 MILLIGRAM, QD
     Route: 065
  3. VALPROATE SODIUM [Concomitant]
     Active Substance: VALPROATE SODIUM
     Indication: Epilepsy
     Dosage: 1250 MILLIGRAM, QD
     Route: 065
  4. DIAZEPAM [Concomitant]
     Active Substance: DIAZEPAM
     Indication: Epilepsy
     Dosage: 1166 MILLIGRAM, QD
     Route: 065
  5. MELATONIN [Concomitant]
     Active Substance: MELATONIN
     Indication: Sleep disorder
     Dosage: 12 MILLIGRAM, QD
     Route: 065
  6. SODIUM ALGINATE-SODIUM BICARBONATE [Concomitant]
     Indication: Abdominal pain
     Dosage: 3 DOSAGE FORM, QD
     Route: 065
  7. LANSOPRAZOLE [Concomitant]
     Active Substance: LANSOPRAZOLE
     Indication: Abdominal pain
     Dosage: 30 MILLIGRAM, QD
     Route: 065
  8. PHLOROGLUCINOL [Concomitant]
     Active Substance: PHLOROGLUCINOL
     Indication: Abdominal pain
     Dosage: 480 MILLIGRAM, QD
     Route: 065

REACTIONS (14)
  - Serotonin syndrome [Recovering/Resolving]
  - Bezoar [Recovering/Resolving]
  - Pain [Recovering/Resolving]
  - Agitation [Recovering/Resolving]
  - Restlessness [Recovering/Resolving]
  - Rhabdomyolysis [Recovering/Resolving]
  - Coma [Recovering/Resolving]
  - Tachycardia [Recovering/Resolving]
  - Hyperthermia [Recovering/Resolving]
  - Chills [Recovering/Resolving]
  - Diarrhoea [Recovering/Resolving]
  - Hyperhidrosis [Recovering/Resolving]
  - Iron deficiency anaemia [Recovering/Resolving]
  - Overdose [Unknown]
